FAERS Safety Report 6080434-2 (Version None)
Quarter: 2009Q1

REPORT INFORMATION
  Report Type: 
  Country: None (occurrence: None)
  Receive Date: 20090217
  Receipt Date: 20090210
  Transmission Date: 20090719
  Serious: Yes (Hospitalization)
  Sender: FDA-Public Use
  Company Number: PHHY2009AR04685

PATIENT
  Sex: Female

DRUGS (2)
  1. EXFORGE [Suspect]
     Indication: HYPERTENSION
     Dosage: 5/160 MG, QD
     Dates: start: 20090112
  2. EXFORGE [Suspect]
     Indication: DIABETES MELLITUS

REACTIONS (1)
  - STENT PLACEMENT [None]
